FAERS Safety Report 14280674 (Version 4)
Quarter: 2018Q1

REPORT INFORMATION
  Report Type: Spontaneous
  Country: BE (occurrence: BE)
  Receive Date: 20171213
  Receipt Date: 20180323
  Transmission Date: 20180508
  Serious: Yes (Life-Threatening, Hospitalization, Other)
  Sender: FDA-Public Use
  Company Number: BE-BRISTOL-MYERS SQUIBB COMPANY-BMS-2017-109518

PATIENT
  Age: 64 Year
  Sex: Female

DRUGS (8)
  1. ORENCIA [Suspect]
     Active Substance: ABATACEPT
     Indication: RHEUMATOID ARTHRITIS
     Dosage: 750 MG, UNK
     Route: 042
     Dates: start: 201705, end: 201711
  2. CO BISOPROLOL [Concomitant]
     Indication: HYPERTENSION
     Dosage: 1 MG, QD
     Route: 048
     Dates: start: 2014
  3. FOLIC ACID. [Concomitant]
     Active Substance: FOLIC ACID
     Indication: RHEUMATOID ARTHRITIS
     Dosage: 1 MG, QD
     Route: 048
     Dates: start: 2013
  4. CALCIUM [Concomitant]
     Active Substance: CALCIUM
     Indication: RHEUMATOID ARTHRITIS
     Dosage: 1 MG, QD
     Route: 048
     Dates: start: 2013
  5. METHOTREXATE. [Concomitant]
     Active Substance: METHOTREXATE
     Indication: RHEUMATOID ARTHRITIS
     Dosage: 15 MG, QWK
     Route: 048
     Dates: start: 2013
  6. PANTOCID                           /01263204/ [Concomitant]
     Active Substance: PANTOPRAZOLE SODIUM
     Indication: PRODUCT USED FOR UNKNOWN INDICATION
     Dosage: 1 MG, QD
     Route: 048
     Dates: start: 2012
  7. COVERSYL                           /00790702/ [Concomitant]
     Active Substance: PERINDOPRIL
     Indication: HYPERTENSION
     Dosage: 1 MG, QD
     Route: 048
     Dates: start: 2014
  8. PREDNISOLONE. [Concomitant]
     Active Substance: PREDNISOLONE
     Indication: RHEUMATOID ARTHRITIS
     Dosage: 5 MG, QD
     Route: 048
     Dates: start: 2013

REACTIONS (1)
  - Pancreatitis acute [Recovering/Resolving]

NARRATIVE: CASE EVENT DATE: 201711
